FAERS Safety Report 6114282-1 (Version None)
Quarter: 2009Q1

REPORT INFORMATION
  Report Type: 
  Country: None (occurrence: None)
  Receive Date: 20090312
  Receipt Date: 20081119
  Transmission Date: 20090719
  Serious: No
  Sender: FDA-Public Use
  Company Number: US-ABBOTT-08P-163-0489075-00

PATIENT
  Age: 55 Year
  Sex: Male
  Weight: 83.99 kg

DRUGS (4)
  1. DEPAKOTE [Suspect]
     Indication: COMPLEX PARTIAL SEIZURES
     Route: 048
     Dates: start: 20060101, end: 20060101
  2. DEPAKOTE [Suspect]
     Indication: GRAND MAL CONVULSION
  3. DILANTIN [Concomitant]
     Indication: COMPLEX PARTIAL SEIZURES
     Route: 048
  4. DILANTIN [Concomitant]
     Indication: GRAND MAL CONVULSION

REACTIONS (1)
  - COMPLEX PARTIAL SEIZURES [None]
